FAERS Safety Report 9253626 (Version 1)
Quarter: 2013Q2

REPORT INFORMATION
  Report Type: Spontaneous
  Country: US (occurrence: US)
  Receive Date: 20130425
  Receipt Date: 20130425
  Transmission Date: 20140414
  Serious: No
  Sender: FDA-Public Use
  Company Number: US-BIOGENIDEC-2013BI037505

PATIENT
  Age: 36 Year
  Sex: Female

DRUGS (1)
  1. TYSABRI [Suspect]
     Indication: MULTIPLE SCLEROSIS
     Route: 042
     Dates: start: 20110124

REACTIONS (7)
  - Fall [Recovered/Resolved]
  - Cognitive disorder [Recovered/Resolved with Sequelae]
  - Stress [Recovered/Resolved with Sequelae]
  - Catheter placement [Recovered/Resolved with Sequelae]
  - Pneumonia [Recovered/Resolved]
  - Cystitis [Recovered/Resolved]
  - Fatigue [Recovered/Resolved]
